FAERS Safety Report 4713117-9 (Version None)
Quarter: 2005Q3

REPORT INFORMATION
  Report Type: 
  Country: None (occurrence: None)
  Receive Date: 20050713
  Receipt Date: 20050621
  Transmission Date: 20060218
  Serious: Yes (Other)
  Sender: FDA-Public Use
  Company Number: PHBS2005CA08926

PATIENT
  Age: 7 Year
  Sex: Male

DRUGS (1)
  1. RITALIN [Suspect]
     Indication: ATTENTION DEFICIT/HYPERACTIVITY DISORDER
     Dosage: 25 MG/D
     Route: 048
     Dates: start: 20031124

REACTIONS (3)
  - CELLULITIS [None]
  - INFECTION [None]
  - RASH PAPULAR [None]
